FAERS Safety Report 4325254-1 (Version None)
Quarter: 2004Q1

REPORT INFORMATION
  Report Type: 
  Country: None (occurrence: None)
  Receive Date: 20040324
  Receipt Date: 20040308
  Transmission Date: 20041129
  Serious: Yes (Hospitalization)
  Sender: FDA-Public Use
  Company Number: LBID00204000676

PATIENT
  Age: 74 Year
  Sex: Female

DRUGS (2)
  1. LITHIUM CARBONATE [Suspect]
     Indication: BIPOLAR DISORDER
     Dosage: 300 MG DAILY PO
     Route: 048
  2. ZALTOPROFEN (ZALTOPROFEN) [Suspect]
     Indication: ARTHRALGIA
     Dosage: 240 MG DAILY PO
     Route: 048

REACTIONS (19)
  - ANOREXIA [None]
  - ARTHRALGIA [None]
  - ASTERIXIS [None]
  - BLOOD CREATININE INCREASED [None]
  - BLOOD UREA INCREASED [None]
  - BLOOD URIC ACID INCREASED [None]
  - CREATININE RENAL CLEARANCE DECREASED [None]
  - DEHYDRATION [None]
  - DELIRIUM [None]
  - DRUG LEVEL ABOVE THERAPEUTIC [None]
  - DRY SKIN [None]
  - ELECTROENCEPHALOGRAM ABNORMAL [None]
  - FALL [None]
  - GAIT DISTURBANCE [None]
  - MYOCLONUS [None]
  - PARKINSONISM [None]
  - RENAL DISORDER [None]
  - TONGUE DRY [None]
  - TREMOR [None]
